FAERS Safety Report 21956343 (Version 1)
Quarter: 2023Q1

REPORT INFORMATION
  Report Type: Report from Study
  Country: EG (occurrence: EG)
  Receive Date: 20230206
  Receipt Date: 20230206
  Transmission Date: 20230417
  Serious: Yes (Other)
  Sender: FDA-Public Use
  Company Number: EG-002147023-NVSC2023EG023655

PATIENT
  Sex: Female

DRUGS (1)
  1. ENTRESTO [Suspect]
     Active Substance: SACUBITRIL\VALSARTAN
     Indication: Cardiac failure
     Dosage: 0.5 DOSAGE FORM, BID (50 TABLETS)
     Route: 048
     Dates: start: 20220915

REACTIONS (8)
  - Atrial fibrillation [Unknown]
  - Dementia Alzheimer^s type [Unknown]
  - Memory impairment [Unknown]
  - Concomitant disease aggravated [Unknown]
  - Depression [Unknown]
  - Mood swings [Unknown]
  - Ejection fraction decreased [Unknown]
  - Wrong technique in product usage process [Unknown]
